FAERS Safety Report 8296398-7 (Version None)
Quarter: 2012Q2

REPORT INFORMATION
  Report Type: 
  Country: None (occurrence: None)
  Receive Date: 20120418
  Receipt Date: 20120411
  Transmission Date: 20120825
  Serious: Yes (Hospitalization, Other)
  Sender: FDA-Public Use
  Company Number: US-ALEXION-A201200684

PATIENT
  Sex: Male
  Weight: 1.16 kg

DRUGS (2)
  1. SOLIRIS [Suspect]
     Dosage: 1200 MG, SINGLE
     Route: 064
     Dates: start: 20120330
  2. BETAMETHASONE [Concomitant]
     Dosage: UNK
     Route: 064

REACTIONS (6)
  - PATENT DUCTUS ARTERIOSUS [None]
  - APGAR SCORE LOW [None]
  - PREMATURE BABY [None]
  - INFANTILE APNOEIC ATTACK [None]
  - FEEDING DISORDER NEONATAL [None]
  - WEIGHT DECREASED [None]
